FAERS Safety Report 23535746 (Version 3)
Quarter: 2024Q1

REPORT INFORMATION
  Report Type: Spontaneous
  Country: JP (occurrence: JP)
  Receive Date: 20240218
  Receipt Date: 20240307
  Transmission Date: 20240409
  Serious: Yes (Life-Threatening, Hospitalization, Other)
  Sender: FDA-Public Use
  Company Number: None

PATIENT
  Age: 19 Year
  Sex: Female

DRUGS (12)
  1. IBUPROFEN [Interacting]
     Active Substance: IBUPROFEN
     Indication: Suicide attempt
     Dosage: 1800 MILLIGRAM, TOTAL
     Route: 048
  2. CHLORPHENIRAMINE MALEATE [Interacting]
     Active Substance: CHLORPHENIRAMINE MALEATE
     Indication: Suicide attempt
     Dosage: 60 MILLIGRAM, TOTAL
     Route: 048
  3. ACETAMINOPHEN [Interacting]
     Active Substance: ACETAMINOPHEN
     Indication: Suicide attempt
     Dosage: 600 MILLIGRAM, TOTAL
     Route: 048
  4. CAFFEINE [Interacting]
     Active Substance: CAFFEINE
     Indication: Suicide attempt
     Dosage: 950 MILLIGRAM, TOTAL
     Route: 048
  5. DEXTROMETHORPHAN [Suspect]
     Active Substance: DEXTROMETHORPHAN
     Indication: Suicide attempt
     Dosage: UNK (500 TO 1000MG FOR THE PAST 6 MONTHS) (INTERMITTENTLY)
     Route: 065
  6. DEXTROMETHORPHAN [Suspect]
     Active Substance: DEXTROMETHORPHAN
     Dosage: 320 DOSAGE FORM, TOTAL (4800MG; OVERDOSE)
     Route: 048
  7. METHYLEPHEDRINE [Interacting]
     Active Substance: METHYLEPHEDRINE
     Indication: Suicide attempt
     Dosage: 400 MILLIGRAM, TOTAL
     Route: 048
  8. DIHYDROCODEINE PHOSPHATE [Interacting]
     Active Substance: DIHYDROCODEINE PHOSPHATE
     Indication: Suicide attempt
     Dosage: 150 MILLIGRAM
     Route: 048
  9. ESCITALOPRAM [Interacting]
     Active Substance: ESCITALOPRAM OXALATE
     Indication: Eating disorder
     Dosage: 5 MILLIGRAM
     Route: 065
  10. ESCITALOPRAM [Interacting]
     Active Substance: ESCITALOPRAM OXALATE
     Indication: Depression
  11. LITHIUM [Concomitant]
     Active Substance: LITHIUM
     Indication: Eating disorder
     Dosage: 800 MILLIGRAM
     Route: 065
  12. LITHIUM [Concomitant]
     Active Substance: LITHIUM
     Indication: Depression

REACTIONS (7)
  - Toxic encephalopathy [Recovered/Resolved]
  - Suicide attempt [Unknown]
  - Electroencephalogram abnormal [Recovered/Resolved]
  - Serotonin syndrome [Recovered/Resolved]
  - Drug interaction [Recovered/Resolved]
  - Coma [Recovered/Resolved]
  - Overdose [Recovered/Resolved]
